FAERS Safety Report 5002582-8 (Version None)
Quarter: 2006Q2

REPORT INFORMATION
  Report Type: 
  Country: None (occurrence: None)
  Receive Date: 20060515
  Receipt Date: 20051031
  Transmission Date: 20061013
  Serious: Yes (Hospitalization)
  Sender: FDA-Public Use
  Company Number: US-MERCK-0511USA00338

PATIENT
  Age: 61 Year
  Sex: Female

DRUGS (15)
  1. ASPIRIN [Concomitant]
     Route: 065
  2. GEMFIBROZIL [Concomitant]
     Route: 065
  3. DIAZEPAM [Concomitant]
     Route: 065
  4. FERROUS SULFATE [Concomitant]
     Route: 065
  5. POTASSIUM CHLORIDE [Concomitant]
     Route: 065
  6. PRINIVIL [Concomitant]
     Route: 065
  7. VITAMINS (UNSPECIFIED) [Concomitant]
     Route: 065
  8. PRILOSEC [Concomitant]
     Route: 065
  9. PROZAC [Concomitant]
     Route: 065
  10. VIOXX [Suspect]
     Route: 048
     Dates: start: 20010409, end: 20040930
  11. SYNTHROID [Concomitant]
     Route: 065
  12. PREMARIN [Concomitant]
     Route: 065
  13. BUMEX [Concomitant]
     Route: 065
  14. ELAVIL [Concomitant]
     Route: 065
  15. NORVASC [Concomitant]
     Route: 065

REACTIONS (5)
  - BACK PAIN [None]
  - CEREBROVASCULAR ACCIDENT [None]
  - INTERVERTEBRAL DISC DEGENERATION [None]
  - MUSCULAR WEAKNESS [None]
  - OEDEMA PERIPHERAL [None]
